FAERS Safety Report 21511894 (Version 6)
Quarter: 2023Q2

REPORT INFORMATION
  Report Type: Report from Study
  Country: US (occurrence: US)
  Receive Date: 20221027
  Receipt Date: 20230610
  Transmission Date: 20230721
  Serious: Yes (Other)
  Sender: FDA-Public Use
  Company Number: US-NOVARTISPH-NVSC2022US238027

PATIENT
  Age: 75 Year
  Sex: Female

DRUGS (8)
  1. TABRECTA [Suspect]
     Active Substance: CAPMATINIB
     Indication: Lung neoplasm malignant
     Dosage: 400 MG, BID
     Route: 048
     Dates: start: 202211
  2. TABRECTA [Suspect]
     Active Substance: CAPMATINIB
     Indication: Lung carcinoma cell type unspecified recurrent
     Dosage: 200 MG, BID
     Route: 048
  3. TABRECTA [Suspect]
     Active Substance: CAPMATINIB
     Dosage: UNK
     Route: 065
     Dates: start: 20221117
  4. TABRECTA [Suspect]
     Active Substance: CAPMATINIB
     Dosage: 400 MG, BID
     Route: 048
     Dates: start: 20221118
  5. TABRECTA [Suspect]
     Active Substance: CAPMATINIB
     Dosage: 200 MG, BID
     Route: 048
     Dates: start: 20221122
  6. TABRECTA [Suspect]
     Active Substance: CAPMATINIB
     Dosage: 200 MG, BID
     Route: 048
     Dates: start: 202212
  7. TABRECTA [Suspect]
     Active Substance: CAPMATINIB
     Dosage: 400 MG, BID
     Route: 048
     Dates: start: 202305
  8. LASIX [Concomitant]
     Active Substance: FUROSEMIDE
     Indication: Product used for unknown indication
     Dosage: UNK
     Route: 065

REACTIONS (13)
  - Pulmonary oedema [Unknown]
  - Weight increased [Recovered/Resolved]
  - Hyperhidrosis [Unknown]
  - Aortic disorder [Unknown]
  - Heart valve stenosis [Unknown]
  - Generalised oedema [Recovered/Resolved]
  - Peripheral swelling [Not Recovered/Not Resolved]
  - Aortic valve disease [Unknown]
  - Dyspnoea [Recovered/Resolved]
  - Dyspnoea [Not Recovered/Not Resolved]
  - Oedema peripheral [Not Recovered/Not Resolved]
  - Fatigue [Unknown]
  - Nausea [Unknown]

NARRATIVE: CASE EVENT DATE: 20221118
